FAERS Safety Report 18321726 (Version 1)
Quarter: 2020Q3

REPORT INFORMATION
  Report Type: Spontaneous
  Country: US (occurrence: US)
  Receive Date: 20200928
  Receipt Date: 20200928
  Transmission Date: 20201103
  Serious: No
  Sender: FDA-Public Use
  Company Number: US-BAYER-2020-208403

PATIENT
  Sex: Female

DRUGS (2)
  1. CLARITIN LIQUI?GELS [Concomitant]
     Active Substance: LORATADINE
  2. CLARITIN [Suspect]
     Active Substance: LORATADINE
     Indication: GLUTEN SENSITIVITY
     Route: 048

REACTIONS (2)
  - Product use in unapproved indication [None]
  - Adverse drug reaction [Unknown]
